FAERS Safety Report 25262368 (Version 1)
Quarter: 2025Q2

REPORT INFORMATION
  Report Type: Spontaneous
  Country: US (occurrence: US)
  Receive Date: 20250502
  Receipt Date: 20250502
  Transmission Date: 20250717
  Serious: No
  Sender: TEVA
  Company Number: US-TEVA-VS-3324559

PATIENT
  Age: 42 Year
  Sex: Female

DRUGS (1)
  1. AUSTEDO XR [Suspect]
     Active Substance: DEUTETRABENAZINE
     Indication: Tardive dyskinesia
     Route: 048

REACTIONS (6)
  - Product use issue [Unknown]
  - Tension [Unknown]
  - Trismus [Unknown]
  - Oral pain [Unknown]
  - Pain [Unknown]
  - Adverse event [Unknown]
